FAERS Safety Report 21307216 (Version 1)
Quarter: 2022Q3

REPORT INFORMATION
  Report Type: Spontaneous
  Country: FR (occurrence: FR)
  Receive Date: 20220908
  Receipt Date: 20220908
  Transmission Date: 20221027
  Serious: Yes (Hospitalization, Other)
  Sender: FDA-Public Use
  Company Number: None

PATIENT

DRUGS (2)
  1. LAMICTAL [Suspect]
     Active Substance: LAMOTRIGINE
     Indication: Bipolar disorder
     Dosage: 100 MG, QD
     Route: 048
     Dates: start: 20220312, end: 20220408
  2. TEGRETOL [Suspect]
     Active Substance: CARBAMAZEPINE
     Indication: Bipolar disorder
     Dosage: 150 MG, QD
     Route: 048
     Dates: start: 20220312, end: 20220408

REACTIONS (1)
  - Drug reaction with eosinophilia and systemic symptoms [Recovered/Resolved]

NARRATIVE: CASE EVENT DATE: 20220329
